FAERS Safety Report 21388071 (Version 1)
Quarter: 2022Q3

REPORT INFORMATION
  Report Type: Spontaneous
  Country: US (occurrence: US)
  Receive Date: 20220928
  Receipt Date: 20220928
  Transmission Date: 20221027
  Serious: No
  Sender: FDA-Public Use
  Company Number: US-SA-SAC20220923000259

PATIENT
  Age: 11 Year
  Sex: Male
  Weight: 51 kg

DRUGS (1)
  1. DUPIXENT [Suspect]
     Active Substance: DUPILUMAB
     Indication: Dermatitis atopic
     Dosage: 300 MG;FREQUENCY:OTHER
     Route: 058
     Dates: start: 20220808

REACTIONS (2)
  - Off label use [Unknown]
  - Off label use of device [Unknown]

NARRATIVE: CASE EVENT DATE: 20220808
